FAERS Safety Report 9631229 (Version 2)
Quarter: 2013Q4

REPORT INFORMATION
  Report Type: Spontaneous
  Country: US (occurrence: US)
  Receive Date: 20131018
  Receipt Date: 20131107
  Transmission Date: 20140711
  Serious: Yes (Hospitalization)
  Sender: FDA-Public Use
  Company Number: US-BAYER-2013-125586

PATIENT
  Age: 33 Year
  Sex: Female
  Weight: 54.88 kg

DRUGS (4)
  1. YAZ [Suspect]
  2. YASMIN [Suspect]
  3. VITAMIN B12 [CYANOCOBALAMIN] [Concomitant]
  4. ACETAMINOPHEN W/HYDROCODONE [Concomitant]

REACTIONS (1)
  - Vena cava thrombosis [None]
